FAERS Safety Report 7914231-7 (Version None)
Quarter: 2011Q4

REPORT INFORMATION
  Report Type: 
  Country: None (occurrence: None)
  Receive Date: 20111110
  Receipt Date: 20111102
  Transmission Date: 20120403
  Serious: Yes (Life-Threatening)
  Sender: FDA-Public Use
  Company Number: MSTR-NO-1109S-0240

PATIENT
  Age: 39 Year
  Sex: Female

DRUGS (7)
  1. GEM (OMEPRAZOLE) [Concomitant]
  2. ZOMETA [Concomitant]
  3. TAXOL [Concomitant]
  4. METASTRON [Suspect]
     Indication: METASTATIC PAIN
     Dosage: 120.2 MBQ, SINGLE DOSE, INTRAVENOUS
     Route: 042
     Dates: start: 20110805, end: 20110805
  5. CYCLOPHOSPHAMIDE HYDRATE (CYCLOPHOSPHAMIDE MONOHYDRATE) [Concomitant]
  6. UFT (UFTORAL) [Concomitant]
  7. CBDCA (CARBOPLATIN) [Concomitant]

REACTIONS (1)
  - DISSEMINATED INTRAVASCULAR COAGULATION [None]
